FAERS Safety Report 9007267 (Version 2)
Quarter: 2013Q1

REPORT INFORMATION
  Report Type: Spontaneous
  Country: US (occurrence: US)
  Receive Date: 20130110
  Receipt Date: 20130211
  Transmission Date: 20140127
  Serious: Yes (Other)
  Sender: FDA-Public Use
  Company Number: US-US-EMD SERONO, INC.-7185342

PATIENT
  Sex: Female
  Weight: 16.3 kg

DRUGS (5)
  1. SAIZEN [(SOMATROPIN (RDNA ORIGIN) FOR INJECTION)] [Suspect]
     Indication: GROWTH HORMONE DEFICIENCY
     Route: 058
     Dates: start: 20121004, end: 201301
  2. LOVENOX [Concomitant]
     Indication: THROMBOSIS
     Route: 058
  3. IVIG [Concomitant]
     Indication: OBESITY
  4. ZANTAC [Concomitant]
     Indication: GASTROOESOPHAGEAL REFLUX DISEASE
     Route: 048
  5. TPN AND LIPIDS [Concomitant]
     Indication: MALNUTRITION

REACTIONS (1)
  - Anaemia [Not Recovered/Not Resolved]
